FAERS Safety Report 7380840-X (Version None)
Quarter: 2011Q1

REPORT INFORMATION
  Report Type: 
  Country: None (occurrence: None)
  Receive Date: 20110329
  Receipt Date: 20110318
  Transmission Date: 20110831
  Serious: Yes (Hospitalization)
  Sender: FDA-Public Use
  Company Number: B0706885A

PATIENT
  Sex: Male

DRUGS (4)
  1. XOLAIR [Suspect]
     Indication: ASTHMA
     Dosage: 3UNIT EVERY TWO WEEKS
     Route: 058
     Dates: start: 20100101, end: 20100911
  2. MIZOLLEN [Suspect]
     Indication: ASTHMA
     Dosage: 10MG PER DAY
     Route: 048
  3. SERETIDE [Suspect]
     Indication: ASTHMA
     Route: 055
  4. AVAMYS [Suspect]
     Indication: ASTHMA
     Dosage: 55MCG PER DAY
     Route: 045

REACTIONS (11)
  - ATAXIA [None]
  - MALAISE [None]
  - BALANCE DISORDER [None]
  - CSF PROTEIN ABNORMAL [None]
  - PAIN [None]
  - ELECTROMYOGRAM ABNORMAL [None]
  - POLYNEUROPATHY [None]
  - MUSCULAR WEAKNESS [None]
  - DYSPHONIA [None]
  - AUTONOMIC NERVOUS SYSTEM IMBALANCE [None]
  - GENERAL PHYSICAL HEALTH DETERIORATION [None]
